FAERS Safety Report 4795301-1 (Version None)
Quarter: 2005Q4

REPORT INFORMATION
  Report Type: 
  Country: None (occurrence: None)
  Receive Date: 20051012
  Receipt Date: 20051006
  Transmission Date: 20060501
  Serious: Yes (Other)
  Sender: FDA-Public Use
  Company Number: US-GLAXOSMITHKLINE-A0577288A

PATIENT
  Age: 57 Year
  Sex: Male

DRUGS (6)
  1. REQUIP [Suspect]
     Indication: PARKINSON'S DISEASE
     Route: 048
     Dates: end: 20020130
  2. ALLEGRA [Concomitant]
     Indication: MULTIPLE ALLERGIES
     Dosage: 2TAB PER DAY
  3. PAXIL [Concomitant]
     Indication: DEPRESSION
  4. TAMBOCOR [Concomitant]
     Indication: ARRHYTHMIA
     Dosage: 100MG PER DAY
  5. FIBER SUPPLEMENT [Concomitant]
  6. ELDEPRYL [Concomitant]

REACTIONS (4)
  - LOSS OF CONSCIOUSNESS [None]
  - OEDEMA PERIPHERAL [None]
  - RAYNAUD'S PHENOMENON [None]
  - SLEEP ATTACKS [None]
